FAERS Safety Report 17538739 (Version 2)
Quarter: 2020Q2

REPORT INFORMATION
  Report Type: Report from Study
  Country: None (occurrence: BR)
  Receive Date: 20200313
  Receipt Date: 20200420
  Transmission Date: 20200713
  Serious: Yes (Hospitalization)
  Sender: FDA-Public Use
  Company Number: BR-ABBVIE-20K-020-3317954-00

PATIENT
  Age: 43 Year
  Sex: Female
  Weight: 56 kg

DRUGS (6)
  1. PNEUMOCOCCAL 13 VACCINE [Suspect]
     Active Substance: PNEUMOCOCCAL 13-VALENT CONJUGATE VACCINE
     Route: 065
     Dates: start: 20200213, end: 20200213
  2. HUMIRA [Suspect]
     Active Substance: ADALIMUMAB
     Route: 058
     Dates: start: 20200413
  3. HUMIRA [Suspect]
     Active Substance: ADALIMUMAB
     Indication: RHEUMATOID ARTHRITIS
     Dosage: 1 UNSPECIFIC DOSE
     Route: 058
     Dates: start: 20191216, end: 202002
  4. PNEUMOCOCCAL 13 VACCINE [Suspect]
     Active Substance: PNEUMOCOCCAL 13-VALENT CONJUGATE VACCINE
     Indication: PRODUCT USED FOR UNKNOWN INDICATION
     Route: 065
     Dates: start: 20191213, end: 20191213
  5. AZATHIOPRINE. [Concomitant]
     Active Substance: AZATHIOPRINE
     Indication: AUTOIMMUNE DISORDER
     Route: 048
     Dates: start: 20191205, end: 20200316
  6. PNEUMOCOCCAL 23 VACCINE [Suspect]
     Active Substance: PNEUMOCOCCAL VACCINE, POLYVALENT 23
     Indication: PRODUCT USED FOR UNKNOWN INDICATION
     Route: 065
     Dates: start: 20200214, end: 20200214

REACTIONS (9)
  - Headache [Unknown]
  - Oedema peripheral [Recovered/Resolved]
  - Infection [Recovered/Resolved]
  - Eye disorder [Unknown]
  - Pyrexia [Recovered/Resolved]
  - C-reactive protein abnormal [Unknown]
  - Chills [Recovered/Resolved]
  - Erythema [Recovered/Resolved]
  - Anisocytosis [Unknown]

NARRATIVE: CASE EVENT DATE: 20200213
